FAERS Safety Report 13307444 (Version 1)
Quarter: 2017Q1

REPORT INFORMATION
  Report Type: Spontaneous
  Country: GR (occurrence: GR)
  Receive Date: 20170308
  Receipt Date: 20170308
  Transmission Date: 20170428
  Serious: Yes (Other)
  Sender: FDA-Public Use
  Company Number: GR-PFIZER INC-2017096802

PATIENT
  Age: 65 Year
  Sex: Female

DRUGS (5)
  1. NEURONTIN [Suspect]
     Active Substance: GABAPENTIN
     Indication: MYALGIA
     Dosage: 400 MG, 2X/DAY
     Dates: start: 2011
  2. NEURONTIN [Suspect]
     Active Substance: GABAPENTIN
     Dosage: 300 MG, UNK
  3. GABAPENTIN. [Suspect]
     Active Substance: GABAPENTIN
     Indication: HAEMANGIOMA
  4. GABAPENTIN. [Suspect]
     Active Substance: GABAPENTIN
     Indication: MYALGIA
  5. NEURONTIN [Suspect]
     Active Substance: GABAPENTIN
     Indication: HAEMANGIOMA
     Dosage: 300 MG, 2X/DAY

REACTIONS (12)
  - Gastrointestinal haemorrhage [Unknown]
  - Pallor [Unknown]
  - Thyroid cancer [Unknown]
  - Product use issue [Unknown]
  - Chest pain [Unknown]
  - Pigmentation disorder [Unknown]
  - Pruritus [Unknown]
  - Dizziness [Unknown]
  - Tuberculosis [Unknown]
  - Anaemia [Unknown]
  - Fall [Unknown]
  - Skin exfoliation [Unknown]

NARRATIVE: CASE EVENT DATE: 2011
